FAERS Safety Report 25206530 (Version 1)
Quarter: 2025Q2

REPORT INFORMATION
  Report Type: Report from Study
  Country: US (occurrence: US)
  Receive Date: 20250417
  Receipt Date: 20250417
  Transmission Date: 20250717
  Serious: Yes (Hospitalization)
  Sender: JOHNSON AND JOHNSON
  Company Number: US-JNJFOC-20250412067

PATIENT
  Age: 21 Month
  Sex: Female

DRUGS (12)
  1. TRACLEER [Suspect]
     Active Substance: BOSENTAN
     Indication: Pulmonary hypertension
     Route: 048
  2. FLUTICASONE [Concomitant]
     Active Substance: FLUTICASONE
     Route: 055
  3. HYDROCHLOROTHIAZIDE\SPIRONOLACTONE [Concomitant]
     Active Substance: HYDROCHLOROTHIAZIDE\SPIRONOLACTONE
  4. FAMOTIDINE [Concomitant]
     Active Substance: FAMOTIDINE
     Route: 048
  5. FUROSEMIDE [Concomitant]
     Active Substance: FUROSEMIDE
     Route: 048
  6. SILDENAFIL [Concomitant]
     Active Substance: SILDENAFIL
     Route: 048
  7. POTASSIUM CHLORIDE [Concomitant]
     Active Substance: POTASSIUM CHLORIDE
     Route: 048
  8. AMOXICILLIN [Concomitant]
     Active Substance: AMOXICILLIN
     Route: 048
  9. ALBUTEROL [Concomitant]
     Active Substance: ALBUTEROL
  10. ZINC OXIDE [Concomitant]
     Active Substance: ZINC OXIDE
     Route: 061
  11. OXYGEN [Concomitant]
     Active Substance: OXYGEN
  12. LIQREV [Concomitant]
     Active Substance: SILDENAFIL CITRATE

REACTIONS (7)
  - Coronavirus infection [Unknown]
  - Norovirus infection [Unknown]
  - Feeding intolerance [Unknown]
  - Dehydration [Unknown]
  - Diarrhoea [Recovering/Resolving]
  - Vomiting [Recovering/Resolving]
  - Off label use [Unknown]

NARRATIVE: CASE EVENT DATE: 20250309
